FAERS Safety Report 9469641 (Version 1)
Quarter: 2013Q3

REPORT INFORMATION
  Report Type: Spontaneous
  Country: US (occurrence: None)
  Receive Date: 20130820
  Receipt Date: 20130820
  Transmission Date: 20140515
  Serious: Yes (Death, Hospitalization)
  Sender: FDA-Public Use
  Company Number: None

PATIENT
  Age: 68 Year
  Sex: Female
  Weight: 61.24 kg

DRUGS (1)
  1. AMIODARONE [Suspect]
     Indication: CARDIAC DISORDER
     Dates: start: 20121018, end: 20121031

REACTIONS (8)
  - Dialysis [None]
  - Respiratory failure [None]
  - Pneumonia [None]
  - Cerebrovascular accident [None]
  - Infection [None]
  - Renal failure [None]
  - Swelling [None]
  - Reaction to drug excipients [None]
